FAERS Safety Report 6158239-3 (Version None)
Quarter: 2009Q2

REPORT INFORMATION
  Report Type: 
  Country: None (occurrence: None)
  Receive Date: 20090417
  Receipt Date: 20090408
  Transmission Date: 20091009
  Serious: Yes (Hospitalization)
  Sender: FDA-Public Use
  Company Number: US-AMGEN-QUU342272

PATIENT
  Sex: Male

DRUGS (3)
  1. ENBREL [Suspect]
     Indication: PSORIATIC ARTHROPATHY
     Route: 058
  2. METHOTREXATE [Concomitant]
  3. KENALOG [Concomitant]

REACTIONS (13)
  - DIARRHOEA [None]
  - DRUG INEFFECTIVE [None]
  - FALL [None]
  - LIMB OPERATION [None]
  - LOCALISED INFECTION [None]
  - LOWER LIMB FRACTURE [None]
  - OSTEOMYELITIS [None]
  - OSTEONECROSIS [None]
  - PSORIASIS [None]
  - PSORIATIC ARTHROPATHY [None]
  - SKIN LACERATION [None]
  - SPINAL OPERATION [None]
  - STAPHYLOCOCCAL INFECTION [None]
